FAERS Safety Report 4911896-9 (Version None)
Quarter: 2006Q1

REPORT INFORMATION
  Report Type: 
  Country: None (occurrence: None)
  Receive Date: 20060215
  Receipt Date: 20060203
  Transmission Date: 20060701
  Serious: Yes (Hospitalization)
  Sender: FDA-Public Use
  Company Number: 2006AP00612

PATIENT
  Sex: Female

DRUGS (2)
  1. ARIMIDEX [Suspect]
     Indication: BREAST CANCER
     Route: 048
     Dates: start: 20050801
  2. RADIOTHERAPY [Suspect]
     Indication: BREAST CANCER

REACTIONS (2)
  - INTERSTITIAL LUNG DISEASE [None]
  - RADIATION PNEUMONITIS [None]
